FAERS Safety Report 13903153 (Version 1)
Quarter: 2017Q3

REPORT INFORMATION
  Report Type: Report from Study
  Country: FR (occurrence: FR)
  Receive Date: 20170824
  Receipt Date: 20170824
  Transmission Date: 20171127
  Serious: Yes (Death)
  Sender: FDA-Public Use
  Company Number: FR-ACCORD-057616

PATIENT
  Age: 76 Year
  Sex: Male

DRUGS (4)
  1. DOXORUBICIN [Suspect]
     Active Substance: DOXORUBICIN
     Indication: PANCREATIC NEUROENDOCRINE TUMOUR METASTATIC
  2. STREPTOZOCIN [Suspect]
     Active Substance: STREPTOZOCIN
     Indication: PANCREATIC NEUROENDOCRINE TUMOUR METASTATIC
  3. DACARBAZINE. [Suspect]
     Active Substance: DACARBAZINE
     Indication: PANCREATIC NEUROENDOCRINE TUMOUR METASTATIC
  4. FLUOROURACIL. [Suspect]
     Active Substance: FLUOROURACIL
     Indication: PANCREATIC NEUROENDOCRINE TUMOUR METASTATIC
     Dosage: METASTATIC UNRESECTABLE PANCREATIC NEUROENDOCRINE TUMOUR

REACTIONS (3)
  - Acute coronary syndrome [Fatal]
  - Left ventricular dysfunction [Fatal]
  - Off label use [Unknown]
